FAERS Safety Report 11714326 (Version 1)
Quarter: 2015Q4

REPORT INFORMATION
  Report Type: Spontaneous
  Country: GB (occurrence: GB)
  Receive Date: 20151109
  Receipt Date: 20151109
  Transmission Date: 20160304
  Serious: Yes (Hospitalization)
  Sender: FDA-Public Use
  Company Number: GB-TEVA-607866ISR

PATIENT
  Age: 56 Year
  Sex: Male

DRUGS (11)
  1. SODIUM VALPROATE [Concomitant]
     Active Substance: VALPROATE SODIUM
     Dosage: 500MG MANE
  2. NAPROXEN. [Concomitant]
     Active Substance: NAPROXEN
  3. CITALOPRAM [Concomitant]
     Active Substance: CITALOPRAM HYDROBROMIDE
     Dosage: 20 MG MANE
  4. HUMAN INSULIN [Concomitant]
     Active Substance: INSULIN HUMAN
     Dosage: 14 UNITS NOCTE
  5. METFORMIN [Concomitant]
     Active Substance: METFORMIN HYDROCHLORIDE
     Dosage: 2 GRAM DAILY; 1G BD
  6. SODIUM VALPROATE [Concomitant]
     Active Substance: VALPROATE SODIUM
     Dosage: 1 G NOCTE
  7. TRAMADOL. [Concomitant]
     Active Substance: TRAMADOL
  8. FENTANYL. [Suspect]
     Active Substance: FENTANYL
     Indication: PRODUCT USED FOR UNKNOWN INDICATION
     Dosage: 100 MCG 72 HOURLY
     Route: 062
  9. ASPIRIN. [Concomitant]
     Active Substance: ASPIRIN
     Dosage: 75 MG MANE
  10. ATORVASTATIN [Concomitant]
     Active Substance: ATORVASTATIN
     Dosage: 40 MG MANE
  11. HUMAN INSULIN [Concomitant]
     Active Substance: INSULIN HUMAN
     Dosage: 16 UNITS MANE

REACTIONS (3)
  - Encephalitis [Recovering/Resolving]
  - Toxicity to various agents [Recovering/Resolving]
  - Overdose [Recovering/Resolving]
